FAERS Safety Report 9321969 (Version 2)
Quarter: 2013Q2

REPORT INFORMATION
  Report Type: Spontaneous
  Country: US (occurrence: None)
  Receive Date: 20130528
  Receipt Date: 20130605
  Transmission Date: 20140414
  Serious: Yes (Other)
  Sender: FDA-Public Use
  Company Number: AUR-APL-2013-04177

PATIENT
  Sex: Male

DRUGS (6)
  1. LIDOCAINE [Suspect]
     Indication: TACHYCARDIA
     Route: 042
  2. AMIODARONE [Suspect]
     Route: 042
  3. ESMOLOL [Suspect]
     Route: 042
  4. FOSPHENYTOIN [Suspect]
     Route: 042
  5. MEXILETINE [Suspect]
     Route: 048
  6. PROPANOLOL [Suspect]
     Route: 048

REACTIONS (5)
  - Cyanosis neonatal [None]
  - Transposition of the great vessels [None]
  - Ventricular septal defect [None]
  - Atrial septal defect [None]
  - Ventricular tachycardia [None]
